FAERS Safety Report 23751522 (Version 2)
Quarter: 2024Q2

REPORT INFORMATION
  Report Type: Report from Study
  Country: US (occurrence: US)
  Receive Date: 20240417
  Receipt Date: 20240608
  Transmission Date: 20240716
  Serious: Yes (Other)
  Sender: FDA-Public Use
  Company Number: US-ABBVIE-5719174

PATIENT
  Sex: Male

DRUGS (1)
  1. SKYRIZI [Suspect]
     Active Substance: RISANKIZUMAB-RZAA
     Indication: Product used for unknown indication
     Dosage: FREQUENCY TEXT: UNKNOWN, START DATE TEXT: UNKNOWN, STOP DATE TEXT: UNKNOWN
     Route: 058
     Dates: start: 20230630

REACTIONS (7)
  - Knee operation [Recovering/Resolving]
  - Pain [Not Recovered/Not Resolved]
  - Osteoarthritis [Not Recovered/Not Resolved]
  - Arthritis [Not Recovered/Not Resolved]
  - Pruritus [Recovering/Resolving]
  - Skin discolouration [Unknown]
  - Dry skin [Unknown]
